FAERS Safety Report 5619920-5 (Version None)
Quarter: 2008Q1

REPORT INFORMATION
  Report Type: 
  Country: None (occurrence: None)
  Receive Date: 20080208
  Receipt Date: 20070619
  Transmission Date: 20080703
  Serious: No
  Sender: FDA-Public Use
  Company Number: US-ABBOTT-07P-163-0372007-00

PATIENT
  Sex: Female
  Weight: 56.75 kg

DRUGS (7)
  1. VICODIN [Suspect]
     Indication: PAIN
     Dosage: 5MG/500MG
     Route: 048
     Dates: start: 20070604
  2. POTASSIUM CHLORIDE [Concomitant]
     Indication: IMPAIRED GASTRIC EMPTYING
     Dosage: 10%
     Route: 048
  3. MAGNESIUM [Concomitant]
     Indication: IMPAIRED GASTRIC EMPTYING
     Route: 048
  4. CALCIUM GLUCONATE [Concomitant]
     Indication: IMPAIRED GASTRIC EMPTYING
     Route: 048
  5. ONDANSETRON [Concomitant]
     Indication: NAUSEA
     Route: 048
  6. ZOLPIDEM TARTRATE [Concomitant]
     Indication: INSOMNIA
     Route: 048
  7. CARISOPRODOL [Concomitant]
     Indication: MUSCLE SPASMS
     Route: 048

REACTIONS (2)
  - NAUSEA [None]
  - VOMITING [None]
